FAERS Safety Report 6930106-4 (Version None)
Quarter: 2010Q3

REPORT INFORMATION
  Report Type: 
  Country: None (occurrence: None)
  Receive Date: 20100818
  Receipt Date: 20090708
  Transmission Date: 20110219
  Serious: No
  Sender: FDA-Public Use
  Company Number: US-ASTRAZENECA-2005UW04036

PATIENT
  Age: 78 Year
  Sex: Male
  Weight: 83 kg

DRUGS (13)
  1. IRESSA [Suspect]
     Indication: ADENOCARCINOMA
     Route: 048
     Dates: start: 20040901
  2. IRESSA [Suspect]
     Indication: LUNG NEOPLASM MALIGNANT
     Route: 048
     Dates: start: 20040901
  3. ANTIHYPERTENSIVES [Concomitant]
     Indication: HYPERTENSION
  4. ASPIRIN [Concomitant]
  5. VITAMINS [Concomitant]
  6. METAMUCIL-2 [Concomitant]
  7. LISINOPRIL [Concomitant]
  8. AMLODIPINE BESYLATE [Concomitant]
  9. BENADRYL [Concomitant]
  10. AMOXICILLIN [Concomitant]
  11. BETAMETHASONE CREAM [Concomitant]
  12. IBUPROFEN [Concomitant]
  13. PROCTOSOLE CREAM [Concomitant]

REACTIONS (2)
  - BOWEL MOVEMENT IRREGULARITY [None]
  - RASH [None]
